FAERS Safety Report 5326883-9 (Version None)
Quarter: 2007Q2

REPORT INFORMATION
  Report Type: 
  Country: None (occurrence: None)
  Receive Date: 20070511
  Receipt Date: 20070425
  Transmission Date: 20071010
  Serious: Yes (Hospitalization)
  Sender: FDA-Public Use
  Company Number: 8023625

PATIENT
  Age: 1 Month
  Sex: Female
  Weight: 5 kg

DRUGS (5)
  1. KEPPRA [Suspect]
     Indication: CONVULSION
     Dosage: /D PO
     Route: 048
     Dates: start: 20070423, end: 20070423
  2. KEPPRA [Suspect]
     Indication: CONVULSION
     Dosage: /D PO
     Route: 048
     Dates: start: 20070424, end: 20070424
  3. ANTIBIOTICS [Concomitant]
  4. PHENYTOIN [Concomitant]
  5. KEPPRA [Suspect]
     Indication: CONVULSION
     Dosage: /D PO
     Route: 048
     Dates: start: 20070425

REACTIONS (4)
  - AGITATION [None]
  - FLATULENCE [None]
  - INFANTILE SPITTING UP [None]
  - INSOMNIA [None]
